FAERS Safety Report 19711238 (Version 1)
Quarter: 2021Q3

REPORT INFORMATION
  Report Type: Spontaneous
  Country: NL (occurrence: NL)
  Receive Date: 20210816
  Receipt Date: 20210816
  Transmission Date: 20211014
  Serious: Yes (Other)
  Sender: FDA-Public Use
  Company Number: NL-CORDEN PHARMA LATINA S.P.A.-NL-2021COR000011

PATIENT

DRUGS (3)
  1. LOMUSTINE. [Suspect]
     Active Substance: LOMUSTINE
     Indication: NEOPLASM
     Dosage: 110 MG/M2, ON DAY 1
     Route: 065
  2. VINCRISTINE [Suspect]
     Active Substance: VINCRISTINE
     Indication: NEOPLASM
     Dosage: 1.4 MG/M2, (MAXIMUM OF 2MG) ON DAYS 8 AND 29
     Route: 065
  3. PROCARBAZINE [Suspect]
     Active Substance: PROCARBAZINE
     Indication: NEOPLASM
     Dosage: 60 MG/M2, ON DAYS 8?21
     Route: 065

REACTIONS (1)
  - Fatigue [Unknown]
